FAERS Safety Report 13232572 (Version 4)
Quarter: 2017Q4

REPORT INFORMATION
  Report Type: Report from Study
  Country: None (occurrence: US)
  Receive Date: 20170214
  Receipt Date: 20171113
  Transmission Date: 20180320
  Serious: Yes (Hospitalization, Other)
  Sender: FDA-Public Use
  Company Number: US-ABBVIE-17K-163-1868170-00

PATIENT
  Age: 33 Year
  Sex: Male
  Weight: 61.74 kg

DRUGS (2)
  1. HUMIRA [Suspect]
     Active Substance: ADALIMUMAB
     Indication: CROHN^S DISEASE
     Route: 058
     Dates: start: 2007, end: 20170210
  2. AZATHIOPRINE. [Concomitant]
     Active Substance: AZATHIOPRINE
     Indication: PRODUCT USED FOR UNKNOWN INDICATION

REACTIONS (15)
  - Faecaloma [Recovered/Resolved]
  - Intestinal obstruction [Recovered/Resolved]
  - Abdominal adhesions [Recovered/Resolved]
  - Drug ineffective [Unknown]
  - Ileal stenosis [Recovered/Resolved]
  - Hepatitis B [Not Recovered/Not Resolved]
  - Crohn^s disease [Unknown]
  - Abdominal pain [Recovered/Resolved]
  - Intestinal obstruction [Recovered/Resolved]
  - Hypophagia [Recovered/Resolved]
  - Flatulence [Recovered/Resolved]
  - Crohn^s disease [Recovered/Resolved]
  - Abdominal pain [Recovered/Resolved]
  - Dyschezia [Recovered/Resolved]
  - Lactose intolerance [Unknown]

NARRATIVE: CASE EVENT DATE: 2014
